FAERS Safety Report 8072078-8 (Version None)
Quarter: 2012Q1

REPORT INFORMATION
  Report Type: 
  Country: None (occurrence: None)
  Receive Date: 20120126
  Receipt Date: 20120117
  Transmission Date: 20120608
  Serious: Yes (Hospitalization)
  Sender: FDA-Public Use
  Company Number: AU-JNJFOC-20120103490

PATIENT
  Sex: Male

DRUGS (7)
  1. PANADOL OSTEO [Concomitant]
  2. METHOTREXATE [Concomitant]
  3. NEXIUM [Concomitant]
  4. SIMPONI [Suspect]
     Route: 058
     Dates: start: 20111208
  5. ANTI-INFLAMMATORY [Suspect]
  6. CYMBALTA [Concomitant]
  7. SIMPONI [Suspect]
     Indication: PSORIATIC ARTHROPATHY
     Route: 058
     Dates: start: 20111110

REACTIONS (2)
  - SKIN INFECTION [None]
  - URINARY TRACT INFECTION [None]
